FAERS Safety Report 15423916 (Version 1)
Quarter: 2018Q3

REPORT INFORMATION
  Report Type: Spontaneous
  Country: JP (occurrence: JP)
  Receive Date: 20180925
  Receipt Date: 20180925
  Transmission Date: 20181010
  Serious: Yes (Hospitalization, Other)
  Sender: FDA-Public Use
  Company Number: JP-MYLANLABS-2018M1066022

PATIENT
  Age: 48 Year
  Sex: Male

DRUGS (5)
  1. FLUNITRAZEPAM [Concomitant]
     Active Substance: FLUNITRAZEPAM
     Indication: PRODUCT USED FOR UNKNOWN INDICATION
     Route: 065
  2. LORAZEPAM. [Concomitant]
     Active Substance: LORAZEPAM
     Indication: PRODUCT USED FOR UNKNOWN INDICATION
     Route: 065
  3. VALPROIC ACID. [Suspect]
     Active Substance: VALPROIC ACID
     Dosage: TAPERED DOSE
     Route: 048
  4. MAPROTILINE HYDROCHLORIDE. [Concomitant]
     Active Substance: MAPROTILINE HYDROCHLORIDE
     Indication: PRODUCT USED FOR UNKNOWN INDICATION
     Route: 065
  5. VALPROIC ACID. [Suspect]
     Active Substance: VALPROIC ACID
     Indication: DEPRESSION
     Dosage: 60 MG, UNK
     Route: 048

REACTIONS (8)
  - Hyperammonaemia [Recovered/Resolved]
  - Condition aggravated [Unknown]
  - Quality of life decreased [Unknown]
  - Myofascial pain syndrome [Unknown]
  - Disturbance in attention [Unknown]
  - Apathy [Unknown]
  - Lethargy [Unknown]
  - Altered state of consciousness [Unknown]
